FAERS Safety Report 10357602 (Version 3)
Quarter: 2015Q3

REPORT INFORMATION
  Report Type: Report from Study
  Country: US (occurrence: US)
  Receive Date: 20140801
  Receipt Date: 20150706
  Transmission Date: 20151125
  Serious: Yes (Other)
  Sender: FDA-Public Use
  Company Number: PHEH2014US015142

PATIENT
  Sex: Female
  Weight: 61.2 kg

DRUGS (3)
  1. CLOZARIL [Suspect]
     Active Substance: CLOZAPINE
     Indication: SCHIZOPHRENIA
     Dosage: 400 MG, DAILY (100 MG QAM AND 300 MG QPM)
     Route: 048
     Dates: start: 20140630
  2. PRENATAL VITAMIN [Concomitant]
     Active Substance: VITAMINS
     Indication: PREGNANCY
     Dosage: 1 DF PER 6 DAY
     Route: 048
     Dates: start: 201406
  3. HALDOL [Concomitant]
     Active Substance: HALOPERIDOL
     Indication: PARANOIA
     Dosage: 150 MG, UNK
     Route: 065

REACTIONS (1)
  - Maternal exposure during pregnancy [Not Recovered/Not Resolved]
